FAERS Safety Report 21565195 (Version 4)
Quarter: 2023Q1

REPORT INFORMATION
  Report Type: Report from Study
  Country: DE (occurrence: None)
  Receive Date: 20221108
  Receipt Date: 20230102
  Transmission Date: 20230418
  Serious: Yes (Hospitalization)
  Sender: FDA-Public Use
  Company Number: DE-ROCHE-3206980

PATIENT
  Age: 60 Year
  Sex: Female
  Weight: 86 kg

DRUGS (21)
  1. ATEZOLIZUMAB [Suspect]
     Active Substance: ATEZOLIZUMAB
     Indication: Triple negative breast cancer
     Dosage: ON 23/SEP/2022, MOST RECENT DOSE OF ATEZOLIZUMAB WAS ADMINISTERED PRIOR TO AE.
     Route: 041
     Dates: start: 20220616
  2. PACLITAXEL [Suspect]
     Active Substance: PACLITAXEL
     Indication: Triple negative breast cancer
     Dosage: ON 09/SEP/2022, MOST RECENT DOSE OF PACLITAXEL WAS ADMINISTERED PRIOR TO AE.
     Route: 042
     Dates: start: 20220616
  3. CARBOPLATIN [Suspect]
     Active Substance: CARBOPLATIN
     Indication: Triple negative breast cancer
     Dosage: ON 09/SEP/2022, MOST RECENT DOSE OF CARBOPLATIN WAS ADMINISTERED PRIOR TO AE.
     Route: 042
     Dates: start: 20220616
  4. EPIRUBICIN [Suspect]
     Active Substance: EPIRUBICIN
     Indication: Triple negative breast cancer
     Dosage: ON 23/SEP/2022, MOST RECENT DOSE OF EPIRUBICIN WAS ADMINISTERED PRIOR TO AE.
     Route: 042
     Dates: start: 20220923
  5. CYCLOPHOSPHAMIDE [Suspect]
     Active Substance: CYCLOPHOSPHAMIDE
     Indication: Triple negative breast cancer
     Dosage: ON 23/SEP/2022, MOST RECENT DOSE OF CYCLOPHOSPHAMIDE WAS ADMINISTERED PRIOR TO AE.
     Route: 042
     Dates: start: 20220923
  6. METFORMIN [Concomitant]
     Active Substance: METFORMIN HYDROCHLORIDE
  7. ATORVASTATIN [Concomitant]
     Active Substance: ATORVASTATIN
  8. VENLAFAXINE [Concomitant]
     Active Substance: VENLAFAXINE HYDROCHLORIDE
  9. RAMIPRIL [Concomitant]
     Active Substance: RAMIPRIL
  10. OPIPRAMOL [Concomitant]
     Active Substance: OPIPRAMOL
  11. SPASMEX (GERMANY) [Concomitant]
  12. DULAGLUTIDE [Concomitant]
     Active Substance: DULAGLUTIDE
  13. LOPERAMIDE [Concomitant]
     Active Substance: LOPERAMIDE
     Dates: start: 20220629, end: 20220706
  14. FILGRASTIM [Concomitant]
     Active Substance: FILGRASTIM
     Dosage: 30 MIO I.E. ONCE
     Dates: start: 20220713, end: 20220713
  15. FILGRASTIM [Concomitant]
     Active Substance: FILGRASTIM
     Dosage: 30 MIO I.E. ONCE
     Dates: start: 20220720, end: 20220720
  16. FILGRASTIM [Concomitant]
     Active Substance: FILGRASTIM
     Dosage: 30 MIO I.E. AS NEEDED
     Dates: start: 20220812, end: 20220812
  17. FILGRASTIM [Concomitant]
     Active Substance: FILGRASTIM
     Dosage: 30 MIO I.E.
     Dates: start: 20220930
  18. CEFUROXIME [Concomitant]
     Active Substance: CEFUROXIME
     Dates: start: 20220922, end: 20220929
  19. METRONIDAZOLE [Concomitant]
     Active Substance: METRONIDAZOLE
     Dates: start: 20220922, end: 20220929
  20. CIPROFLOXACIN [Concomitant]
     Active Substance: CIPROFLOXACIN
     Dates: start: 20221002, end: 20221008
  21. HUMAN RED BLOOD CELL [Concomitant]
     Active Substance: HUMAN RED BLOOD CELL
     Dates: start: 20221002, end: 20221002

REACTIONS (2)
  - Extravasation [Recovered/Resolved with Sequelae]
  - General physical health deterioration [Recovered/Resolved with Sequelae]

NARRATIVE: CASE EVENT DATE: 20220923
